FAERS Safety Report 4509962-5 (Version None)
Quarter: 2004Q4

REPORT INFORMATION
  Report Type: 
  Country: None (occurrence: None)
  Receive Date: 20041119
  Receipt Date: 20041109
  Transmission Date: 20050328
  Serious: Yes (Hospitalization, Other)
  Sender: FDA-Public Use
  Company Number: 2004091118

PATIENT
  Sex: Female
  Weight: 54.4316 kg

DRUGS (4)
  1. LIPITOR [Suspect]
     Indication: BLOOD CHOLESTEROL INCREASED
     Dosage: 20 MG (20 MG, 1 IN 1 D), ORAL
     Route: 048
  2. WARFARIN SODIUM [Concomitant]
  3. DIGOXIN [Concomitant]
  4. METOPROLOL TARTRATE [Concomitant]

REACTIONS (10)
  - ASTHENIA [None]
  - BODY HEIGHT DECREASED [None]
  - CARDIAC VALVE DISEASE [None]
  - CONDITION AGGRAVATED [None]
  - ECHOCARDIOGRAM ABNORMAL [None]
  - HEART RATE INCREASED [None]
  - MITRAL VALVE DISEASE [None]
  - MUSCLE ATROPHY [None]
  - MUSCLE DISORDER [None]
  - OSTEOPOROSIS [None]
